FAERS Safety Report 14506810 (Version 1)
Quarter: 2018Q1

REPORT INFORMATION
  Report Type: Spontaneous
  Country: US (occurrence: US)
  Receive Date: 20180207
  Receipt Date: 20180207
  Transmission Date: 20180509
  Serious: Yes (Other)
  Sender: FDA-Public Use
  Company Number: None

PATIENT
  Age: 36 Year
  Sex: Female
  Weight: 76.5 kg

DRUGS (1)
  1. MIRENA [Suspect]
     Active Substance: LEVONORGESTREL
     Indication: CONTRACEPTION
     Dosage: OTHER ROUTE:INTRAUTERINE?
     Route: 015
     Dates: start: 20151221

REACTIONS (11)
  - Palpitations [None]
  - Sleep disorder [None]
  - Psychotic disorder [None]
  - Self-injurious ideation [None]
  - Feeling abnormal [None]
  - Anger [None]
  - Libido decreased [None]
  - Acne [None]
  - Weight increased [None]
  - Panic attack [None]
  - Anhedonia [None]

NARRATIVE: CASE EVENT DATE: 20180207
